FAERS Safety Report 6419153-9 (Version None)
Quarter: 2009Q4

REPORT INFORMATION
  Report Type: 
  Country: None (occurrence: None)
  Receive Date: 20091028
  Receipt Date: 20091028
  Transmission Date: 20100525
  Serious: Yes (Life-Threatening)
  Sender: FDA-Public Use
  Company Number: None

PATIENT
  Age: 67 Year
  Sex: Male
  Weight: 70.3075 kg

DRUGS (4)
  1. ABILIFY [Suspect]
     Indication: AGITATED DEPRESSION
     Dosage: 2.5 MG TWICE DAILY PO
     Route: 048
     Dates: start: 20090301, end: 20090601
  2. NORTRIPTYLINE HYDROCHLORIDE [Concomitant]
  3. LAMICTAL [Concomitant]
  4. LIPITOR [Concomitant]

REACTIONS (5)
  - AMNESIA [None]
  - DISORIENTATION [None]
  - IMPAIRED DRIVING ABILITY [None]
  - SOMNAMBULISM [None]
  - SOMNOLENCE [None]
